FAERS Safety Report 23993294 (Version 1)
Quarter: 2024Q2

REPORT INFORMATION
  Report Type: Spontaneous
  Country: CH (occurrence: CH)
  Receive Date: 20240620
  Receipt Date: 20240620
  Transmission Date: 20240715
  Serious: Yes (Death, Other)
  Sender: FDA-Public Use
  Company Number: CH-Orion Corporation ORION PHARMA-TREX2024-0159

PATIENT

DRUGS (1)
  1. METHOTREXATE [Suspect]
     Active Substance: METHOTREXATE
     Indication: Product used for unknown indication
     Dosage: DAILY RATHER THAN WEEKLY ADMINISTRATION
     Dates: start: 2022

REACTIONS (7)
  - Inappropriate schedule of product administration [Fatal]
  - Overdose [Unknown]
  - Stomatitis [Unknown]
  - Gingivitis [Unknown]
  - Rash [Unknown]
  - Vomiting [Unknown]
  - Pancytopenia [Unknown]

NARRATIVE: CASE EVENT DATE: 20220101
